FAERS Safety Report 8812445 (Version 2)
Quarter: 2015Q2

REPORT INFORMATION
  Report Type: Report from Study
  Country: US (occurrence: US)
  Receive Date: 20120927
  Receipt Date: 20150401
  Transmission Date: 20150821
  Serious: Yes (Death)
  Sender: FDA-Public Use
  Company Number: US-ROCHE-1126904

PATIENT
  Sex: Female

DRUGS (52)
  1. AVASTIN [Suspect]
     Active Substance: BEVACIZUMAB
     Indication: BREAST CANCER FEMALE
     Dosage: IN 250ML NORMAL SALINE
     Route: 042
     Dates: start: 20050725
  2. KYTRIL [Concomitant]
     Active Substance: GRANISETRON HYDROCHLORIDE
     Dosage: IN 100ML NORMAL SALINE
     Route: 042
     Dates: start: 20050906
  3. TAXOTERE [Concomitant]
     Active Substance: DOCETAXEL
     Dosage: IN 250ML NORMAL SALINE
     Route: 042
     Dates: start: 20050718
  4. TAXOTERE [Concomitant]
     Active Substance: DOCETAXEL
     Dosage: IN 250ML NORMAL SALINE
     Route: 042
     Dates: start: 20050725
  5. DECADRON [Concomitant]
     Active Substance: DEXAMETHASONE
     Dosage: IN 100ML NORMAL SALINE
     Route: 042
     Dates: start: 20050718
  6. DECADRON [Concomitant]
     Active Substance: DEXAMETHASONE
     Dosage: IN 100ML NORMAL SALINE
     Route: 042
     Dates: start: 20050919
  7. AVASTIN [Suspect]
     Active Substance: BEVACIZUMAB
     Dosage: IN 250ML NORMAL SALINE
     Route: 042
     Dates: start: 20050822
  8. DECADRON [Concomitant]
     Active Substance: DEXAMETHASONE
     Dosage: IN 100ML NORMAL SALINE
     Route: 042
     Dates: start: 20050711
  9. DECADRON [Concomitant]
     Active Substance: DEXAMETHASONE
     Dosage: IN 100ML NORMAL SALINE
     Route: 042
     Dates: start: 20050815
  10. DECADRON [Concomitant]
     Active Substance: DEXAMETHASONE
     Dosage: IN 100ML NORMAL SALINE
     Route: 042
     Dates: start: 20050912
  11. KYTRIL [Concomitant]
     Active Substance: GRANISETRON HYDROCHLORIDE
     Dosage: IN 100ML NORMAL SALINE
     Route: 042
     Dates: start: 20050725
  12. TAXOTERE [Concomitant]
     Active Substance: DOCETAXEL
     Dosage: IN 250ML NORMAL SALINE
     Route: 042
     Dates: start: 20050815
  13. TAXOTERE [Concomitant]
     Active Substance: DOCETAXEL
     Dosage: IN 250ML NORMAL SALINE
     Route: 042
     Dates: start: 20050919
  14. DECADRON [Concomitant]
     Active Substance: DEXAMETHASONE
     Dosage: IN 100ML NORMAL SALINE
     Route: 042
     Dates: start: 20050725
  15. DECADRON [Concomitant]
     Active Substance: DEXAMETHASONE
     Dosage: IN 100ML NORMAL SALINE
     Route: 042
     Dates: start: 20050808
  16. TYLENOL [Concomitant]
     Active Substance: ACETAMINOPHEN
     Route: 048
     Dates: start: 20050906
  17. BENADRYL [Concomitant]
     Active Substance: DIPHENHYDRAMINE HYDROCHLORIDE
     Dosage: IN 250ML 5% DEXTROSE WATER
     Route: 042
     Dates: start: 20050919
  18. AVASTIN [Suspect]
     Active Substance: BEVACIZUMAB
     Dosage: IN 250ML NORMAL SALINE
     Route: 042
     Dates: start: 20050919
  19. KYTRIL [Concomitant]
     Active Substance: GRANISETRON HYDROCHLORIDE
     Dosage: IN 100ML NORMAL SALINE
     Route: 042
     Dates: start: 20050912
  20. TAXOTERE [Concomitant]
     Active Substance: DOCETAXEL
     Dosage: IN 250ML NORMAL SALINE
     Route: 042
     Dates: start: 20050711
  21. DECADRON [Concomitant]
     Active Substance: DEXAMETHASONE
     Dosage: IN 100ML NORMAL SALINE
     Route: 042
     Dates: start: 20050906
  22. COMPAZINE [Concomitant]
     Active Substance: PROCHLORPERAZINE MALEATE
     Route: 065
  23. TYLENOL [Concomitant]
     Active Substance: ACETAMINOPHEN
     Route: 048
     Dates: start: 20050919
  24. FLAGYL [Concomitant]
     Active Substance: METRONIDAZOLE\METRONIDAZOLE HYDROCHLORIDE
     Dosage: FOR 10 DAYS
     Route: 065
  25. COUMADIN [Concomitant]
     Active Substance: WARFARIN SODIUM
  26. KYTRIL [Concomitant]
     Active Substance: GRANISETRON HYDROCHLORIDE
     Dosage: IN 100ML NORMAL SALINE
     Route: 042
     Dates: start: 20050711
  27. KYTRIL [Concomitant]
     Active Substance: GRANISETRON HYDROCHLORIDE
     Dosage: IN 100ML NORMAL SALINE
     Route: 042
     Dates: start: 20050919
  28. TAXOTERE [Concomitant]
     Active Substance: DOCETAXEL
     Dosage: IN 250ML NORMAL SALINE
     Route: 042
     Dates: start: 20050808
  29. DECADRON [Concomitant]
     Active Substance: DEXAMETHASONE
     Dosage: IN 100ML NORMAL SALINE
     Route: 042
     Dates: start: 20050822
  30. TYLENOL [Concomitant]
     Active Substance: ACETAMINOPHEN
     Route: 048
     Dates: start: 20051013
  31. NORMAL SALINE [Concomitant]
     Active Substance: SODIUM CHLORIDE
     Route: 065
     Dates: start: 20050718
  32. NORMAL SALINE [Concomitant]
     Active Substance: SODIUM CHLORIDE
     Route: 065
     Dates: start: 20050725
  33. KYTRIL [Concomitant]
     Active Substance: GRANISETRON HYDROCHLORIDE
     Dosage: IN 100ML NORMAL SALINE
     Route: 042
     Dates: start: 20050815
  34. TAXOTERE [Concomitant]
     Active Substance: DOCETAXEL
     Dosage: IN 250ML NORMAL SALINE
     Route: 042
     Dates: start: 20050822
  35. TAXOTERE [Concomitant]
     Active Substance: DOCETAXEL
     Dosage: IN 250ML NORMAL SALINE
     Route: 042
     Dates: start: 20050906
  36. AVASTIN [Suspect]
     Active Substance: BEVACIZUMAB
     Dosage: IN 250ML NORMAL SALINE
     Route: 042
     Dates: start: 20050808
  37. ZOMETA [Concomitant]
     Active Substance: ZOLEDRONIC ACID
     Dosage: IN 100ML NORMAL SALINE
     Route: 042
     Dates: start: 20050808
  38. TYLENOL [Concomitant]
     Active Substance: ACETAMINOPHEN
     Route: 048
     Dates: start: 20050725
  39. TYLENOL [Concomitant]
     Active Substance: ACETAMINOPHEN
     Route: 048
     Dates: start: 20050808
  40. TYLENOL [Concomitant]
     Active Substance: ACETAMINOPHEN
     Route: 048
     Dates: start: 20050822
  41. BENADRYL [Concomitant]
     Active Substance: DIPHENHYDRAMINE HYDROCHLORIDE
     Dosage: IN 250ML 5% DEXTROSE WATER
     Route: 042
     Dates: start: 20050725
  42. BENADRYL [Concomitant]
     Active Substance: DIPHENHYDRAMINE HYDROCHLORIDE
     Dosage: IN 250ML 5% DEXTROSE WATER
     Route: 042
     Dates: start: 20050808
  43. BENADRYL [Concomitant]
     Active Substance: DIPHENHYDRAMINE HYDROCHLORIDE
     Dosage: IN 250ML 5% DEXTROSE WATER
     Route: 042
     Dates: start: 20050822
  44. AVASTIN [Suspect]
     Active Substance: BEVACIZUMAB
     Dosage: IN 250ML NORMAL SALINE
     Route: 042
     Dates: start: 20050906
  45. KYTRIL [Concomitant]
     Active Substance: GRANISETRON HYDROCHLORIDE
     Dosage: IN 100ML NORMAL SALINE
     Route: 042
     Dates: start: 20050718
  46. KYTRIL [Concomitant]
     Active Substance: GRANISETRON HYDROCHLORIDE
     Dosage: IN 100ML NORMAL SALINE
     Route: 042
     Dates: start: 20050808
  47. KYTRIL [Concomitant]
     Active Substance: GRANISETRON HYDROCHLORIDE
     Dosage: IN 100ML NORMAL SALINE
     Route: 042
     Dates: start: 20050822
  48. TAXOTERE [Concomitant]
     Active Substance: DOCETAXEL
     Dosage: IN 250ML NORMAL SALINE
     Route: 042
     Dates: start: 20050912
  49. ZOMETA [Concomitant]
     Active Substance: ZOLEDRONIC ACID
     Dosage: IN 100ML NORMAL SALINE
     Route: 042
     Dates: start: 20050711
  50. TYLENOL [Concomitant]
     Active Substance: ACETAMINOPHEN
     Route: 048
     Dates: start: 20051007
  51. BENADRYL [Concomitant]
     Active Substance: DIPHENHYDRAMINE HYDROCHLORIDE
     Dosage: IN 250ML 5% DEXTROSE WATER
     Route: 042
     Dates: start: 20050906
  52. NORMAL SALINE [Concomitant]
     Active Substance: SODIUM CHLORIDE
     Route: 042
     Dates: start: 20050711

REACTIONS (8)
  - Impaired healing [Unknown]
  - Eating disorder [Unknown]
  - Stomatitis [Unknown]
  - Diarrhoea [Unknown]
  - Off label use [Unknown]
  - Death [Fatal]
  - Fatigue [Unknown]
  - Lacrimation increased [Unknown]
